FAERS Safety Report 10874280 (Version 3)
Quarter: 2015Q2

REPORT INFORMATION
  Report Type: Spontaneous
  Country: US (occurrence: None)
  Receive Date: 20150224
  Receipt Date: 20150601
  Transmission Date: 20150821
  Serious: Yes (Hospitalization, Other)
  Sender: FDA-Public Use
  Company Number: US-H14001-15-00256

PATIENT
  Age: 78 Year
  Sex: Male

DRUGS (15)
  1. PREDNISONE (PREDNISONE) (UNKNOWN) (PREDNISONE) [Suspect]
     Active Substance: PREDNISONE
     Indication: RICHTER^S SYNDROME
     Dosage: EVERY 21 DAYS
     Dates: start: 20130718
  2. RITUXIMAB (RITUXIMAB) (UNKNOWN) (RITUXIMAB) [Suspect]
     Active Substance: RITUXIMAB
     Indication: DIFFUSE LARGE B-CELL LYMPHOMA
     Dosage: 758 MG, EVERY 21 DAYS
     Route: 042
     Dates: start: 20130718, end: 20130718
  3. COUMADIN [Concomitant]
     Active Substance: WARFARIN SODIUM
  4. VINCRISTINE (VINCRISTINE) (UNKNOWN) (VINCRISTINE) [Suspect]
     Active Substance: VINCRISTINE
     Indication: RICHTER^S SYNDROME
     Dosage: 2 MG, EVERY 21 DAYS
     Route: 042
     Dates: start: 20130718, end: 20130718
  5. PREDNISONE. [Concomitant]
     Active Substance: PREDNISONE
  6. IVIG (IMMUNOGLOBULIN G HUMAN) [Concomitant]
  7. EPOGEN [Concomitant]
     Active Substance: ERYTHROPOIETIN
  8. DOXORUBICIN (DOXORUBICIN) (UNKNOWN) (DOXORUBICIN) [Suspect]
     Active Substance: DOXORUBICIN
     Indication: RICHTER^S SYNDROME
     Dosage: 71 MG, EVERY 21 DAYS?
     Route: 042
     Dates: start: 20130718, end: 20130718
  9. DOXORUBICIN (DOXORUBICIN) (UNKNOWN) (DOXORUBICIN) [Suspect]
     Active Substance: DOXORUBICIN
     Indication: DIFFUSE LARGE B-CELL LYMPHOMA
     Dosage: 71 MG, EVERY 21 DAYS?
     Route: 042
     Dates: start: 20130718, end: 20130718
  10. PREDNISONE (PREDNISONE) (UNKNOWN) (PREDNISONE) [Suspect]
     Active Substance: PREDNISONE
     Indication: DIFFUSE LARGE B-CELL LYMPHOMA
     Dosage: EVERY 21 DAYS
     Dates: start: 20130718
  11. RITUXIMAB (RITUXIMAB) (UNKNOWN) (RITUXIMAB) [Suspect]
     Active Substance: RITUXIMAB
     Indication: RICHTER^S SYNDROME
     Dosage: 758 MG, EVERY 21 DAYS
     Route: 042
     Dates: start: 20130718, end: 20130718
  12. NEUPOGEN (FILGRASTIM) [Concomitant]
     Active Substance: FILGRASTIM
  13. CYCLOPHOSPHAMIDE (CYCLOPHOSPHAMIDE) (UNKNOWN) (CYCLOPHOSAPHAMIDE) [Suspect]
     Active Substance: CYCLOPHOSPHAMIDE
     Indication: RICHTER^S SYNDROME
     Dosage: 1060 MG, EVERY 21 DAYS
     Route: 042
     Dates: start: 20130718, end: 20130718
  14. CYCLOPHOSPHAMIDE (CYCLOPHOSPHAMIDE) (UNKNOWN) (CYCLOPHOSAPHAMIDE) [Suspect]
     Active Substance: CYCLOPHOSPHAMIDE
     Indication: DIFFUSE LARGE B-CELL LYMPHOMA
     Dosage: 1060 MG, EVERY 21 DAYS
     Route: 042
     Dates: start: 20130718, end: 20130718
  15. VINCRISTINE (VINCRISTINE) (UNKNOWN) (VINCRISTINE) [Suspect]
     Active Substance: VINCRISTINE
     Indication: DIFFUSE LARGE B-CELL LYMPHOMA
     Dosage: 2 MG, EVERY 21 DAYS
     Route: 042
     Dates: start: 20130718, end: 20130718

REACTIONS (5)
  - Sepsis [None]
  - Neutropenia [None]
  - Cytokine release syndrome [None]
  - Abdominal pain [None]
  - Febrile bone marrow aplasia [None]

NARRATIVE: CASE EVENT DATE: 2013
